FAERS Safety Report 9982958 (Version 1)
Quarter: 2014Q1

REPORT INFORMATION
  Report Type: Report from Study
  Country: US (occurrence: US)
  Receive Date: 20140307
  Receipt Date: 20140307
  Transmission Date: 20141002
  Serious: No
  Sender: FDA-Public Use
  Company Number: US-ABBVIE-13P-163-1177746-00

PATIENT
  Age: 84 Year
  Sex: Female

DRUGS (15)
  1. HUMIRA [Suspect]
     Indication: PSORIATIC ARTHROPATHY
  2. OXYCODONE [Concomitant]
     Indication: PAIN
  3. VALSARTAN HCTZ [Concomitant]
     Indication: PRODUCT USED FOR UNKNOWN INDICATION
  4. SIMVASTATIN [Concomitant]
     Indication: BLOOD CHOLESTEROL
  5. HYDRALAZINE [Concomitant]
     Indication: BLOOD PRESSURE
  6. SYMBICORT [Concomitant]
     Indication: CHRONIC OBSTRUCTIVE PULMONARY DISEASE
     Dosage: 160, IN THE MORNING AND IN THE EVENING
  7. HUMALOG [Concomitant]
     Indication: DIABETES MELLITUS
     Dosage: SLIDING SCALE
  8. LANTUS [Concomitant]
     Indication: PRODUCT USED FOR UNKNOWN INDICATION
     Dosage: EVERY EVENING
  9. HYDROXIZINE [Concomitant]
     Indication: PRURITUS
     Dosage: AS NEEDED
  10. ONE A DAY WOMEN^S [Concomitant]
     Indication: PRODUCT USED FOR UNKNOWN INDICATION
  11. STOOL SOFTENER [Concomitant]
     Indication: PRODUCT USED FOR UNKNOWN INDICATION
     Dosage: EVERY MORNING
  12. OCUVITE [Concomitant]
     Indication: EYE DISORDER
  13. CLARITIN [Concomitant]
     Indication: HYPERSENSITIVITY
     Dosage: EVERY MORNING
  14. FISH OIL [Concomitant]
     Indication: EYE DISORDER
  15. OCUSOFT V.M.S. [Concomitant]
     Indication: EYE DISORDER
     Dosage: EVERY MORNING

REACTIONS (2)
  - Wrong technique in drug usage process [Recovered/Resolved]
  - Incorrect dose administered [Recovered/Resolved]
